FAERS Safety Report 14843164 (Version 2)
Quarter: 2018Q2

REPORT INFORMATION
  Report Type: Report from Study
  Country: AR (occurrence: AR)
  Receive Date: 20180503
  Receipt Date: 20180515
  Transmission Date: 20180711
  Serious: Yes (Hospitalization, Other)
  Sender: FDA-Public Use
  Company Number: PHHY2018AR072771

PATIENT
  Sex: Male

DRUGS (2)
  1. EXFORGE [Suspect]
     Active Substance: AMLODIPINE BESYLATE\VALSARTAN
     Indication: HYPERTENSION
     Dosage: 1 DF (AMLODIPINE 5, VALSARTAN 160) (UNIT WAS NOT PROVIDED), QD
     Route: 065
  2. NABILA [Concomitant]
     Indication: HYPERTENSION
     Route: 065

REACTIONS (5)
  - Peripheral swelling [Unknown]
  - Erysipelas [Unknown]
  - Streptococcal infection [Unknown]
  - Colon cancer [Recovered/Resolved]
  - Synovial cyst [Recovered/Resolved]

NARRATIVE: CASE EVENT DATE: 2016
